FAERS Safety Report 13679178 (Version 1)
Quarter: 2017Q2

REPORT INFORMATION
  Report Type: Spontaneous
  Country: FR (occurrence: FR)
  Receive Date: 20170622
  Receipt Date: 20170622
  Transmission Date: 20170830
  Serious: Yes (Hospitalization)
  Sender: FDA-Public Use
  Company Number: FR-BAYER-2017-120452

PATIENT
  Age: 39 Year
  Sex: Female

DRUGS (1)
  1. MIRENA [Suspect]
     Active Substance: LEVONORGESTREL
     Indication: CONTRACEPTION
     Dosage: 20 MCG/24HR, CONT
     Route: 015
     Dates: start: 20130110, end: 20170531

REACTIONS (5)
  - Abdominal pain [Recovered/Resolved]
  - Loss of libido [Recovered/Resolved]
  - Complication associated with device [Recovered/Resolved]
  - Back pain [Recovered/Resolved]
  - Alopecia [Recovered/Resolved]
